FAERS Safety Report 4864779-7 (Version None)
Quarter: 2005Q4

REPORT INFORMATION
  Report Type: 
  Country: None (occurrence: None)
  Receive Date: 20051222
  Receipt Date: 20051004
  Transmission Date: 20060501
  Serious: Yes (Other)
  Sender: FDA-Public Use
  Company Number: US-MERCK-0510USA02212

PATIENT
  Age: 53 Year
  Sex: Female
  Weight: 109 kg

DRUGS (13)
  1. VIOXX [Suspect]
     Route: 048
     Dates: start: 20010813, end: 20031119
  2. K-DUR 10 [Concomitant]
     Route: 065
  3. ATENOLOL [Concomitant]
     Route: 065
  4. ZEBETA [Concomitant]
     Route: 065
  5. ZEBETA [Concomitant]
     Route: 065
  6. ESTRADERM [Concomitant]
     Route: 065
  7. ZOCOR [Concomitant]
     Route: 048
  8. ZOCOR [Concomitant]
     Route: 048
  9. LASIX [Concomitant]
     Route: 065
  10. SYNTHROID [Concomitant]
     Route: 065
  11. SYNTHROID [Concomitant]
     Route: 065
  12. PLAVIX [Concomitant]
     Route: 065
  13. PRAVACHOL [Concomitant]
     Route: 065

REACTIONS (2)
  - CARDIAC DISORDER [None]
  - CEREBROVASCULAR ACCIDENT [None]
